FAERS Safety Report 18559687 (Version 1)
Quarter: 2020Q4

REPORT INFORMATION
  Report Type: Spontaneous
  Country: US (occurrence: US)
  Receive Date: 20201129
  Receipt Date: 20201129
  Transmission Date: 20210114
  Serious: Yes (Disabling)
  Sender: FDA-Public Use
  Company Number: None

PATIENT
  Age: 28 Year
  Sex: Female
  Weight: 45 kg

DRUGS (6)
  1. TACROLIMUS. [Concomitant]
     Active Substance: TACROLIMUS
  2. DESONIDE. [Concomitant]
     Active Substance: DESONIDE
  3. PURELL ADVANCED HAND SANITIZER REFRESHING GEL [Suspect]
     Active Substance: ALCOHOL
     Indication: COVID-19 PROPHYLAXIS
  4. TRIAMCINOLONE [Concomitant]
     Active Substance: TRIAMCINOLONE
  5. TEA TREE OIL. [Concomitant]
     Active Substance: TEA TREE OIL
  6. BETAMETHASONE. [Concomitant]
     Active Substance: BETAMETHASONE

REACTIONS (10)
  - Confusional state [None]
  - Rash [None]
  - Liquid product physical issue [None]
  - Pain in extremity [None]
  - Dizziness [None]
  - Aphasia [None]
  - Burning sensation [None]
  - Cheilitis [None]
  - Fatigue [None]
  - Product odour abnormal [None]

NARRATIVE: CASE EVENT DATE: 20201123
